FAERS Safety Report 17280649 (Version 2)
Quarter: 2022Q1

REPORT INFORMATION
  Report Type: Spontaneous
  Country: US (occurrence: US)
  Receive Date: 20200117
  Receipt Date: 20220223
  Transmission Date: 20220423
  Serious: No
  Sender: FDA-Public Use
  Company Number: US-UCBSA-2019040433

PATIENT
  Age: 78 Year
  Sex: Female

DRUGS (5)
  1. LEVETIRACETAM [Suspect]
     Active Substance: LEVETIRACETAM
     Indication: Myoclonic epilepsy
     Dosage: UNKNOWN DOSE
  2. FOSPHENYTOIN [Suspect]
     Active Substance: FOSPHENYTOIN
     Indication: Myoclonic epilepsy
     Dosage: UNKNOWN DOSE
  3. LORAZEPAM [Suspect]
     Active Substance: LORAZEPAM
     Indication: Myoclonic epilepsy
     Dosage: UNKNOWN DOSE
  4. PHENOBARBITAL [Suspect]
     Active Substance: PHENOBARBITAL
     Indication: Myoclonic epilepsy
     Dosage: UNKNOWN DOSE
  5. PROPOFOL [Suspect]
     Active Substance: PROPOFOL
     Indication: Myoclonic epilepsy
     Dosage: UNKNOWN DOSE

REACTIONS (1)
  - Multiple-drug resistance [Unknown]
